FAERS Safety Report 20757870 (Version 1)
Quarter: 2022Q2

REPORT INFORMATION
  Report Type: Spontaneous
  Country: US (occurrence: US)
  Receive Date: 20220427
  Receipt Date: 20220427
  Transmission Date: 20220720
  Serious: Yes (Other)
  Sender: FDA-Public Use
  Company Number: US-PFIZER INC-202200624434

PATIENT
  Age: 63 Year
  Sex: Male
  Weight: 102.97 kg

DRUGS (1)
  1. PAXLOVID [Suspect]
     Active Substance: NIRMATRELVIR\RITONAVIR
     Indication: COVID-19 treatment
     Dosage: 2 DF, 2X/DAY
     Dates: start: 202203

REACTIONS (4)
  - Papilloedema [Unknown]
  - Blindness unilateral [Unknown]
  - Vision blurred [Unknown]
  - Incorrect dose administered [Unknown]
